FAERS Safety Report 6486127-1 (Version None)
Quarter: 2009Q4

REPORT INFORMATION
  Report Type: 
  Country: None (occurrence: None)
  Receive Date: 20091209
  Receipt Date: 20090911
  Transmission Date: 20100525
  Serious: No
  Sender: FDA-Public Use
  Company Number: US-AMGEN-KDL356864

PATIENT
  Sex: Female

DRUGS (9)
  1. ENBREL [Suspect]
     Indication: RHEUMATOID ARTHRITIS
     Route: 058
     Dates: start: 20090706
  2. METHOTREXATE [Concomitant]
     Route: 048
  3. LISINOPRIL AND HYDROCHLOROTHIAZIDE [Concomitant]
  4. IBUPROFEN [Concomitant]
  5. FISH OIL [Concomitant]
  6. VITAMIN E [Concomitant]
  7. METHYL SULFONYL METHANE [Concomitant]
  8. MULTI-VITAMINS [Concomitant]
  9. PREDNISONE [Concomitant]
     Route: 048

REACTIONS (3)
  - ARTHRALGIA [None]
  - BLISTER [None]
  - CHROMATURIA [None]
